FAERS Safety Report 7097154-8 (Version None)
Quarter: 2010Q4

REPORT INFORMATION
  Report Type: 
  Country: None (occurrence: None)
  Receive Date: 20101111
  Receipt Date: 20100408
  Transmission Date: 20110411
  Serious: No
  Sender: FDA-Public Use
  Company Number: US-KINGPHARMUSA00001-K201000424

PATIENT
  Sex: Male

DRUGS (1)
  1. EMBEDA [Suspect]
     Indication: PAIN
     Dosage: 20 MG, UNK
     Route: 048
     Dates: start: 20100407

REACTIONS (3)
  - DRUG INEFFECTIVE [None]
  - MALAISE [None]
  - PAIN [None]
